FAERS Safety Report 15955192 (Version 1)
Quarter: 2019Q1

REPORT INFORMATION
  Report Type: Spontaneous
  Country: US (occurrence: US)
  Receive Date: 20190213
  Receipt Date: 20190213
  Transmission Date: 20190417
  Serious: No
  Sender: FDA-Public Use
  Company Number: US-PFIZER INC-2018445667

PATIENT
  Age: 85 Year
  Sex: Male

DRUGS (1)
  1. SERTRALINE HCL [Suspect]
     Active Substance: SERTRALINE HYDROCHLORIDE
     Dosage: 50 MG, ONCE DAILY

REACTIONS (4)
  - Asthenia [Unknown]
  - Communication disorder [Unknown]
  - Intentional product misuse [Unknown]
  - Memory impairment [Unknown]
